FAERS Safety Report 5592179-3 (Version None)
Quarter: 2008Q1

REPORT INFORMATION
  Report Type: 
  Country: None (occurrence: None)
  Receive Date: 20080115
  Receipt Date: 20070829
  Transmission Date: 20080703
  Serious: No
  Sender: FDA-Public Use
  Company Number: US-ABBOTT-07P-163-0415406-00

PATIENT
  Sex: Male
  Weight: 83.99 kg

DRUGS (7)
  1. ADVICOR [Suspect]
     Indication: BLOOD CHOLESTEROL
     Route: 048
     Dates: start: 20010101, end: 20070828
  2. NICOTINIC ACID [Concomitant]
     Indication: BLOOD CHOLESTEROL
     Route: 048
     Dates: start: 20070828
  3. VALSARTAN [Concomitant]
     Indication: HYPERTENSION
     Route: 048
  4. MULTI-VITAMIN [Concomitant]
     Indication: DRUG USE FOR UNKNOWN INDICATION
     Route: 048
  5. B-KOMPLEX [Concomitant]
     Indication: DRUG USE FOR UNKNOWN INDICATION
     Route: 048
  6. FISH OIL [Concomitant]
     Indication: DRUG USE FOR UNKNOWN INDICATION
     Route: 048
  7. ASPIRIN [Concomitant]
     Indication: DRUG USE FOR UNKNOWN INDICATION

REACTIONS (1)
  - FLUSHING [None]
